FAERS Safety Report 16132081 (Version 1)
Quarter: 2019Q1

REPORT INFORMATION
  Report Type: Spontaneous
  Country: US (occurrence: US)
  Receive Date: 20190329
  Receipt Date: 20190329
  Transmission Date: 20190418
  Serious: Yes (Other)
  Sender: FDA-Public Use
  Company Number: US-009507513-1903USA010495

PATIENT
  Sex: Female

DRUGS (2)
  1. FOLLISTIM [Suspect]
     Active Substance: FOLLITROPIN
  2. MENOTROPINS [Suspect]
     Active Substance: MENOTROPINS

REACTIONS (1)
  - Ovarian hyperstimulation syndrome [Unknown]
